FAERS Safety Report 20246392 (Version 2)
Quarter: 2022Q2

REPORT INFORMATION
  Report Type: Report from Study
  Country: BR (occurrence: BR)
  Receive Date: 20211229
  Receipt Date: 20220613
  Transmission Date: 20220720
  Serious: Yes (Other)
  Sender: FDA-Public Use
  Company Number: BR-JNJFOC-20211249399

PATIENT
  Sex: Female

DRUGS (1)
  1. INFLIXIMAB [Suspect]
     Active Substance: INFLIXIMAB
     Indication: Crohn^s disease
     Dates: end: 2020

REACTIONS (3)
  - Syncope [Unknown]
  - Infusion related reaction [Unknown]
  - Haematoma [Unknown]

NARRATIVE: CASE EVENT DATE: 20200101
